FAERS Safety Report 17307954 (Version 1)
Quarter: 2020Q1

REPORT INFORMATION
  Report Type: Spontaneous
  Country: TW (occurrence: TW)
  Receive Date: 20200123
  Receipt Date: 20200123
  Transmission Date: 20200409
  Serious: Yes (Death)
  Sender: FDA-Public Use
  Company Number: TW-SA-2020SA015286

PATIENT
  Age: 80 Year
  Sex: Male
  Weight: 57.6 kg

DRUGS (17)
  1. PREDNISOLONE. [Concomitant]
     Active Substance: PREDNISOLONE
     Dosage: 5 MG, BID
     Dates: start: 20191217, end: 20200108
  2. CEFOPERAZONE + SULBACTAM [Concomitant]
     Active Substance: CEFOPERAZONE SODIUM\SULBACTAM
     Indication: PNEUMONIA
     Dosage: 2 G, Q12H
     Dates: start: 20200108, end: 20200113
  3. DURATEARS [WOOL FAT] [Concomitant]
     Dosage: UNK UNK, TID
  4. ETHAMBUTOL [Suspect]
     Active Substance: ETHAMBUTOL HYDROCHLORIDE
     Indication: TUBERCULOSIS
     Dosage: 1200 MG, QD
     Route: 048
     Dates: start: 20191123, end: 20200108
  5. CYPROHEPTADINE. [Concomitant]
     Active Substance: CYPROHEPTADINE
     Dosage: UNK
     Dates: start: 20191217, end: 20200108
  6. BROSYM [Concomitant]
     Active Substance: CEFOPERAZONE SODIUM\SULBACTAM SODIUM
     Indication: PNEUMONIA
     Dosage: 2 MG, Q12H
     Dates: start: 20200108, end: 20200113
  7. FENTANYL. [Concomitant]
     Active Substance: FENTANYL
  8. TRAMADOL. [Concomitant]
     Active Substance: TRAMADOL
  9. RIFINAH [Suspect]
     Active Substance: ISONIAZID\RIFAMPIN
     Indication: TUBERCULOSIS
     Dosage: 2 DF, QD
     Route: 048
     Dates: start: 20191123, end: 20200108
  10. CRAVIT [Concomitant]
     Active Substance: LEVOFLOXACIN
     Dosage: UNK UNK, QID
  11. NORMAL SALINE [Concomitant]
     Active Substance: SODIUM CHLORIDE
  12. PYRAZINAMIDE. [Suspect]
     Active Substance: PYRAZINAMIDE
     Indication: TUBERCULOSIS
     Dosage: 1500 MG, QD
     Route: 048
     Dates: start: 20191123, end: 20200108
  13. NEOMYCIN. [Concomitant]
     Active Substance: NEOMYCIN
  14. LEVOPHED [Concomitant]
     Active Substance: NOREPINEPHRINE BITARTRATE
     Indication: HYPOTENSION
     Dosage: UNK UNK, PRN
  15. ALBUMIN [Concomitant]
     Active Substance: ALBUMIN HUMAN
  16. DIPHENHYDRAMINE. [Concomitant]
     Active Substance: DIPHENHYDRAMINE
     Dosage: 30 MG
     Route: 030
  17. SULFASIL [Concomitant]

REACTIONS (1)
  - Drug eruption [Fatal]
